FAERS Safety Report 8810424 (Version 1)
Quarter: 2012Q4

REPORT INFORMATION
  Report Type: 
  Country: US (occurrence: US)
  Receive Date: 20120927
  Receipt Date: 20120927
  Transmission Date: 20130627
  Serious: No
  Sender: FDA-Public Use
  Company Number: US-009507513-1209USA006929

PATIENT

DRUGS (2)
  1. SAPHRIS [Suspect]
  2. ZYPREXA [Concomitant]

REACTIONS (3)
  - Akathisia [Unknown]
  - Extrapyramidal disorder [Unknown]
  - Dystonia [Unknown]
